FAERS Safety Report 5392283-9 (Version None)
Quarter: 2007Q3

REPORT INFORMATION
  Report Type: 
  Country: None (occurrence: None)
  Receive Date: 20070720
  Receipt Date: 20070703
  Transmission Date: 20080115
  Serious: Yes (Hospitalization)
  Sender: FDA-Public Use
  Company Number: FR-JNJFOC-20051005694

PATIENT
  Sex: Female

DRUGS (10)
  1. TRAMADOL HCL [Suspect]
     Indication: ARTHRALGIA
     Route: 048
     Dates: start: 20050914, end: 20050916
  2. IRBESARTAN [Concomitant]
     Indication: HYPERTENSION
     Route: 048
  3. SLEEPING TABLET [Concomitant]
     Indication: SLEEP DISORDER
     Route: 065
  4. NOCTAMIDE [Concomitant]
     Indication: SLEEP DISORDER
     Route: 048
  5. AREDIA [Concomitant]
     Indication: OSTEOARTHRITIS
     Route: 042
  6. LUBANTHYL [Concomitant]
     Indication: CONSTIPATION
     Route: 048
  7. FORLAX [Concomitant]
     Indication: CONSTIPATION
     Route: 048
  8. PROPOFOL [Concomitant]
     Indication: ARTHRALGIA
     Route: 065
  9. PROPOFOL [Concomitant]
     Indication: BACK PAIN
     Route: 065
  10. NUCTALON [Concomitant]
     Indication: SLEEP DISORDER
     Route: 048

REACTIONS (4)
  - CONFUSIONAL STATE [None]
  - FALL [None]
  - HYPONATRAEMIA [None]
  - INAPPROPRIATE ANTIDIURETIC HORMONE SECRETION [None]
